FAERS Safety Report 5913703-4 (Version None)
Quarter: 2008Q4

REPORT INFORMATION
  Report Type: 
  Country: None (occurrence: None)
  Receive Date: 20081006
  Receipt Date: 20080924
  Transmission Date: 20090506
  Serious: Yes (Death, Hospitalization)
  Sender: FDA-Public Use
  Company Number: APP200700338

PATIENT
  Age: 70 Year
  Sex: Male
  Weight: 88.64 kg

DRUGS (26)
  1. GENTAMICIN [Suspect]
     Indication: DRUG USE FOR UNKNOWN INDICATION
     Dosage: DOSE, INDICTION, AND ROUTE UNKNOWN
  2. KETEK [Suspect]
     Indication: PNEUMONIA
     Dosage: 400 MG,  2 IN 1 D, ORAL
     Route: 048
     Dates: start: 20060801
  3. FUROSEMIDE [Concomitant]
  4. CARVEDILOL [Concomitant]
  5. ASCORBIC ACID [Concomitant]
  6. PYRIDOXINE (PYRIDOXINE) [Concomitant]
  7. BIOTIN [Concomitant]
  8. FOLIC ACID [Concomitant]
  9. THIAMINE HCL [Concomitant]
  10. CYANOCOBALAMIN [Concomitant]
  11. RIBOFLAVIN (RIBOFLAVIN) [Concomitant]
  12. NICOTANAMIDE (NICOTANAMIDE) [Concomitant]
  13. CALCIUM PANTOTHENATE (CALCIUM PANTOTHENATE) [Concomitant]
  14. RANITIDINE HYDROCHLORIDE [Concomitant]
  15. ACETYLSALICYLIC ACID (ACETYLASLICYLIC ACID) [Concomitant]
  16. ALLOPURINOL [Concomitant]
  17. HYDRALAZINE HCL [Concomitant]
  18. CALCIUM ACETATE (CALCIUM ACETATE) [Concomitant]
  19. FLUOXETINE HCL [Concomitant]
  20. LISINOPRIL [Concomitant]
  21. DILTIAZEM HYDROCHLORIDE [Concomitant]
  22. MOXIFLOXACIN HCL [Concomitant]
  23. OSELTAMIVIR (OSELTAMIVIR) [Concomitant]
  24. PREDNISONE [Concomitant]
  25. LEVAQUIN [Concomitant]
  26. VANCOMYCIN [Concomitant]

REACTIONS (52)
  - ABASIA [None]
  - ALCOHOL USE [None]
  - ANAEMIA [None]
  - ANXIETY [None]
  - AORTIC VALVE CALCIFICATION [None]
  - APPENDICEAL ABSCESS [None]
  - ATRIAL FLUTTER [None]
  - BACTERIA URINE IDENTIFIED [None]
  - CANDIDIASIS [None]
  - CARDIAC FAILURE CONGESTIVE [None]
  - CARDIOMEGALY [None]
  - CATHETER RELATED COMPLICATION [None]
  - CATHETER SEPSIS [None]
  - CHROMATURIA [None]
  - COAGULOPATHY [None]
  - DEPRESSION [None]
  - DIALYSIS [None]
  - DIARRHOEA [None]
  - DIVERTICULAR PERFORATION [None]
  - DRUG INTERACTION [None]
  - DRUG LEVEL INCREASED [None]
  - DRUG TOXICITY [None]
  - FATIGUE [None]
  - HAEMORRHOIDAL HAEMORRHAGE [None]
  - HALLUCINATION [None]
  - HEPATIC STEATOSIS [None]
  - HEPATITIS [None]
  - HYPERPARATHYROIDISM [None]
  - HYPOTENSION [None]
  - JOINT DISLOCATION [None]
  - LIVEDO RETICULARIS [None]
  - LIVER DISORDER [None]
  - LIVER INJURY [None]
  - LOBAR PNEUMONIA [None]
  - MASTICATION DISORDER [None]
  - MENISCUS LESION [None]
  - MENTAL STATUS CHANGES [None]
  - MITRAL VALVE CALCIFICATION [None]
  - MUSCLE INJURY [None]
  - MYOCARDIAL INFARCTION [None]
  - MYODESOPSIA [None]
  - OEDEMA [None]
  - PLEURAL EFFUSION [None]
  - PROCEDURAL HYPOTENSION [None]
  - PYELONEPHRITIS [None]
  - RENAL FAILURE CHRONIC [None]
  - RESPIRATORY DISTRESS [None]
  - RHABDOMYOLYSIS [None]
  - STAPHYLOCOCCAL INFECTION [None]
  - STAPHYLOCOCCAL SEPSIS [None]
  - UNRESPONSIVE TO STIMULI [None]
  - VIRAL INFECTION [None]
